FAERS Safety Report 5333356-6 (Version None)
Quarter: 2007Q2

REPORT INFORMATION
  Report Type: 
  Country: None (occurrence: None)
  Receive Date: 20070524
  Receipt Date: 20070522
  Transmission Date: 20071010
  Serious: Yes (Other)
  Sender: FDA-Public Use
  Company Number: JP-AVENTIS-200610826JP

PATIENT
  Age: 36 Year
  Sex: Female
  Weight: 50 kg

DRUGS (16)
  1. ARAVA [Suspect]
     Indication: RHEUMATOID ARTHRITIS
     Route: 048
     Dates: start: 20031029, end: 20031031
  2. ARAVA [Suspect]
     Route: 048
     Dates: start: 20031101, end: 20031222
  3. ARAVA [Suspect]
     Route: 048
     Dates: start: 20031223, end: 20040105
  4. LOXONIN                            /00890701/ [Concomitant]
     Indication: RHEUMATOID ARTHRITIS
     Route: 048
     Dates: start: 20030902, end: 20040118
  5. LOXONIN                            /00890701/ [Concomitant]
     Route: 048
     Dates: start: 20040120, end: 20040223
  6. RIMATIL [Concomitant]
     Indication: RHEUMATOID ARTHRITIS
     Route: 048
     Dates: start: 20030902, end: 20031027
  7. AZULFIDINE EN-TABS [Concomitant]
     Indication: RHEUMATOID ARTHRITIS
     Route: 048
     Dates: start: 20030902, end: 20031027
  8. MUCOSTA [Concomitant]
     Route: 048
     Dates: start: 20030930, end: 20040118
  9. MUCOSTA [Concomitant]
     Route: 048
     Dates: start: 20040120, end: 20040223
  10. BIOFERMIN [Concomitant]
     Indication: CONSTIPATION
     Route: 048
     Dates: start: 20031111, end: 20040104
  11. MAGLAX [Concomitant]
     Indication: CONSTIPATION
     Route: 048
     Dates: start: 20031111, end: 20031117
  12. LOPEMIN [Concomitant]
     Indication: CONSTIPATION
     Route: 048
     Dates: start: 20031111, end: 20031117
  13. OPIUM ALKALOIDS AND DERIVATIVES [Concomitant]
     Indication: COUGH
     Route: 048
     Dates: start: 20031125, end: 20031208
  14. MUCODYNE [Concomitant]
     Indication: COUGH
     Route: 048
     Dates: start: 20031125, end: 20031208
  15. PREDNISOLONE [Concomitant]
     Route: 048
     Dates: start: 20040203, end: 20040223
  16. PREDNISOLONE [Concomitant]
     Route: 048
     Dates: start: 20040120, end: 20040122

REACTIONS (4)
  - ALANINE AMINOTRANSFERASE INCREASED [None]
  - ASPARTATE AMINOTRANSFERASE INCREASED [None]
  - GAMMA-GLUTAMYLTRANSFERASE INCREASED [None]
  - LIVER DISORDER [None]
